FAERS Safety Report 17115450 (Version 1)
Quarter: 2019Q4

REPORT INFORMATION
  Report Type: Spontaneous
  Country: US (occurrence: US)
  Receive Date: 20191205
  Receipt Date: 20191205
  Transmission Date: 20200122
  Serious: Yes (Hospitalization)
  Sender: FDA-Public Use
  Company Number: US-MYLANLABS-2019M1119597

PATIENT
  Age: 73 Year
  Sex: Male

DRUGS (5)
  1. SODIUM THIOSULFATE [Concomitant]
     Active Substance: SODIUM THIOSULFATE
     Indication: POISONING
     Dosage: UNK
     Route: 065
  2. CYANOCOBALAMIN. [Suspect]
     Active Substance: CYANOCOBALAMIN
     Indication: PRODUCT USED FOR UNKNOWN INDICATION
     Dosage: UNK
     Route: 065
  3. NOREPINEPHRINE. [Concomitant]
     Active Substance: NOREPINEPHRINE
     Indication: PRODUCT USED FOR UNKNOWN INDICATION
     Dosage: UNK
     Route: 065
  4. HYDROXOCOBALAMIN [Suspect]
     Active Substance: HYDROXOCOBALAMIN
     Indication: POISONING
     Dosage: UNK
     Route: 065
  5. NORMAL SALINE [Concomitant]
     Active Substance: SODIUM CHLORIDE
     Indication: RESUSCITATION
     Dosage: UNK
     Route: 065

REACTIONS (1)
  - False positive investigation result [Recovered/Resolved]
